FAERS Safety Report 14923131 (Version 1)
Quarter: 2018Q2

REPORT INFORMATION
  Report Type: Spontaneous
  Country: FR (occurrence: FR)
  Receive Date: 20180522
  Receipt Date: 20180522
  Transmission Date: 20180711
  Serious: Yes (Life-Threatening, Hospitalization)
  Sender: FDA-Public Use
  Company Number: FR-TEVA-2018-FR-894022

PATIENT
  Age: 72 Year
  Sex: Male

DRUGS (11)
  1. AZILECT 1 MG, COMPRIM? [Concomitant]
     Route: 048
  2. TAHOR [Concomitant]
     Active Substance: ATORVASTATIN CALCIUM
     Route: 048
  3. LANTUS [Concomitant]
     Active Substance: INSULIN GLARGINE
     Route: 058
  4. LANZOR 30 MG, MICROGRANULES GASTROR?SISTANTS EN G?LULE [Concomitant]
     Route: 048
  5. EUPRESSYL [Concomitant]
     Active Substance: URAPIDIL
     Dosage: 60 MG MARINE AND EVENING AND 30 MG FOR LUNCH
     Route: 048
  6. LOXEN L P 50 MG, G?LULE ? LIB?RATION PROLONG?E [Concomitant]
     Active Substance: NICARDIPINE HYDROCHLORIDE
     Route: 048
  7. XATRAL LP 10 MG, COMPRIM? ? LIB?RATION PROLONG?E [Concomitant]
     Active Substance: ALFUZOSIN
     Route: 048
  8. OXALIPLATIN INJECTION 50MG/10 ML+100MG/20ML [Suspect]
     Active Substance: OXALIPLATIN
     Indication: RECTAL CANCER
     Dosage: INCONNUE
     Route: 042
  9. FLUOROURACIL. [Suspect]
     Active Substance: FLUOROURACIL
     Indication: RECTAL CANCER
     Dosage: INCONNUE
     Route: 042
  10. MODOPAR [Concomitant]
     Active Substance: BENSERAZIDE HYDROCHLORIDE\LEVODOPA
     Route: 048
  11. PLAVIX [Concomitant]
     Active Substance: CLOPIDOGREL BISULFATE
     Route: 048

REACTIONS (1)
  - Acute coronary syndrome [Recovered/Resolved]

NARRATIVE: CASE EVENT DATE: 20171208
